FAERS Safety Report 10230441 (Version 1)
Quarter: 2014Q2

REPORT INFORMATION
  Report Type: Spontaneous
  Country: US (occurrence: US)
  Receive Date: 20140611
  Receipt Date: 20140611
  Transmission Date: 20141212
  Serious: Yes (Other)
  Sender: FDA-Public Use
  Company Number: US-PERRIGO-14US005813

PATIENT
  Sex: 0

DRUGS (1)
  1. DIHYDROERGOTAMINE MESYLATE RX 1 MG/ML 9V8 [Suspect]
     Indication: MIGRAINE
     Dosage: UNK, UNK
     Route: 065
     Dates: start: 201203

REACTIONS (2)
  - Chest pain [Recovered/Resolved]
  - ECG signs of myocardial ischaemia [Recovered/Resolved]
